FAERS Safety Report 6269475-X (Version None)
Quarter: 2009Q3

REPORT INFORMATION
  Report Type: 
  Country: None (occurrence: None)
  Receive Date: 20090714
  Receipt Date: 20090706
  Transmission Date: 20100115
  Serious: Yes (Hospitalization)
  Sender: FDA-Public Use
  Company Number: WAES 0904USA01273

PATIENT
  Age: 72 Year
  Sex: Male

DRUGS (11)
  1. ZETIA [Suspect]
     Indication: HYPERCHOLESTEROLAEMIA
     Dosage: 10 MG/DAILY PO
     Route: 048
     Dates: start: 20080305, end: 20090222
  2. LIPITOR [Suspect]
     Indication: HYPERCHOLESTEROLAEMIA
     Dosage: 20 MG/DAILY PO; 10 MG/DAILY PO
     Route: 048
     Dates: start: 20080305, end: 20080501
  3. LIPITOR [Suspect]
     Indication: HYPERCHOLESTEROLAEMIA
     Dosage: 20 MG/DAILY PO; 10 MG/DAILY PO
     Route: 048
     Dates: start: 20080502, end: 20090222
  4. ACTOS [Concomitant]
  5. AMARYL [Concomitant]
  6. ASPIRIN [Concomitant]
  7. ITOROL [Concomitant]
  8. MG OXIDE [Concomitant]
  9. PANALDINE [Concomitant]
  10. PODONIN S [Concomitant]
  11. SIGMART [Concomitant]

REACTIONS (6)
  - ALANINE AMINOTRANSFERASE INCREASED [None]
  - ASPARTATE AMINOTRANSFERASE INCREASED [None]
  - CHEST DISCOMFORT [None]
  - EJECTION FRACTION DECREASED [None]
  - GLYCOSYLATED HAEMOGLOBIN INCREASED [None]
  - IN-STENT ARTERIAL RESTENOSIS [None]
